FAERS Safety Report 4830767-X (Version None)
Quarter: 2005Q4

REPORT INFORMATION
  Report Type: 
  Country: None (occurrence: None)
  Receive Date: 20051117
  Receipt Date: 20050930
  Transmission Date: 20060501
  Serious: Yes (Other)
  Sender: FDA-Public Use
  Company Number: US-MERCK-0510USA01893

PATIENT
  Age: 55 Year
  Sex: Female
  Weight: 103 kg

DRUGS (6)
  1. VIOXX [Suspect]
     Indication: ARTHRITIS
     Route: 048
     Dates: start: 20010313, end: 20041207
  2. AVANDIA [Concomitant]
     Route: 065
  3. FOLIC ACID [Concomitant]
     Route: 065
  4. LIPITOR [Concomitant]
     Route: 065
  5. METHOTREXATE [Concomitant]
     Route: 065
  6. PREDNISONE [Concomitant]
     Route: 065

REACTIONS (1)
  - MYOCARDIAL INFARCTION [None]
